FAERS Safety Report 22956774 (Version 4)
Quarter: 2023Q4

REPORT INFORMATION
  Report Type: Spontaneous
  Country: CA (occurrence: CA)
  Receive Date: 20230919
  Receipt Date: 20231104
  Transmission Date: 20240110
  Serious: Yes (Hospitalization, Other)
  Sender: FDA-Public Use
  Company Number: CA-CELLTRION INC.-2022CA003196

PATIENT

DRUGS (7)
  1. INFLECTRA [Suspect]
     Active Substance: INFLIXIMAB-DYYB
     Indication: Ankylosing spondylitis
     Dosage: 1 DF 400 MG (APPROX. 5 MG/KG) Q 6 WEEKS
     Route: 042
     Dates: start: 20220124
  2. INFLECTRA [Suspect]
     Active Substance: INFLIXIMAB-DYYB
     Dosage: 1 DF 400 MG (APPROX. 5 MG/KG) Q 6 WEEKS
     Route: 042
     Dates: start: 20220309
  3. INFLECTRA [Suspect]
     Active Substance: INFLIXIMAB-DYYB
     Dosage: 1 DF 400 MG (APPROX. 5 MG/KG) Q 6 WEEKS
     Route: 042
     Dates: start: 20220420
  4. INFLECTRA [Suspect]
     Active Substance: INFLIXIMAB-DYYB
     Dosage: 1 DF 400 MG (APPROX. 5 MG/KG) Q 6 WEEKS
     Route: 042
     Dates: start: 20221116
  5. INFLECTRA [Suspect]
     Active Substance: INFLIXIMAB-DYYB
     Dosage: 1 DF 400 MG (APPROX. 5 MG/KG) Q 6 WEEKS
     Route: 042
     Dates: start: 20221228
  6. INFLECTRA [Suspect]
     Active Substance: INFLIXIMAB-DYYB
     Dosage: 1 DF 400 MG (APPROX. 5 MG/KG) Q 6 WEEKS
     Route: 042
     Dates: start: 20230803
  7. INFLECTRA [Suspect]
     Active Substance: INFLIXIMAB-DYYB
     Dosage: 300MG AFTER 11 WEEKS
     Route: 042
     Dates: start: 20231025

REACTIONS (18)
  - Arthropathy [Recovered/Resolved]
  - Shoulder operation [Recovered/Resolved]
  - Urinary tract infection [Recovered/Resolved]
  - Speech disorder [Unknown]
  - Loss of personal independence in daily activities [Unknown]
  - Neck pain [Unknown]
  - Osteoarthritis [Not Recovered/Not Resolved]
  - Pain in extremity [Unknown]
  - General physical health deterioration [Not Recovered/Not Resolved]
  - Arthralgia [Unknown]
  - Influenza [Recovering/Resolving]
  - Pyrexia [Recovered/Resolved]
  - Bronchitis [Unknown]
  - Cough [Unknown]
  - Off label use [Unknown]
  - Off label use [Unknown]
  - Off label use [Unknown]
  - Intentional product use issue [Unknown]

NARRATIVE: CASE EVENT DATE: 20220124
